FAERS Safety Report 12767273 (Version 2)
Quarter: 2016Q4

REPORT INFORMATION
  Report Type: Spontaneous
  Country: GB (occurrence: GB)
  Receive Date: 20160921
  Receipt Date: 20161005
  Transmission Date: 20170207
  Serious: Yes (Hospitalization)
  Sender: FDA-Public Use
  Company Number: GB-TEVA-693233ACC

PATIENT
  Age: 77 Year

DRUGS (9)
  1. TIMOLOL. [Suspect]
     Active Substance: TIMOLOL
     Dosage: 4 GTT DAILY;
     Route: 047
  2. NIFEDIPINE. [Concomitant]
     Active Substance: NIFEDIPINE
  3. DORZOLAMIDE [Suspect]
     Active Substance: DORZOLAMIDE
     Dosage: 4 GTT DAILY;
     Route: 047
  4. ADALAT CC [Concomitant]
     Active Substance: NIFEDIPINE
     Dosage: 60 MILLIGRAM DAILY;
  5. CO-TENIDONE [Suspect]
     Active Substance: ATENOLOL\CHLORTHALIDONE
     Indication: PRODUCT USED FOR UNKNOWN INDICATION
     Dosage: 1 DOSAGE FORMS DAILY;
     Route: 065
     Dates: end: 20160104
  6. COSOPT [Suspect]
     Active Substance: DORZOLAMIDE HYDROCHLORIDE\TIMOLOL MALEATE
     Indication: PRODUCT USED FOR UNKNOWN INDICATION
     Dosage: 4 GTT DAILY; BOTH EYES
     Route: 047
  7. LATANOPROST. [Concomitant]
     Active Substance: LATANOPROST
  8. DOXAZOSIN [Concomitant]
     Active Substance: DOXAZOSIN\DOXAZOSIN MESYLATE
     Dosage: 2 MILLIGRAM DAILY; PATIENT THINKS THIS WAS STOPPED BY GP
  9. SIMVASTATIN. [Concomitant]
     Active Substance: SIMVASTATIN
     Dosage: 40 MILLIGRAM DAILY; AT NIGHT
     Route: 048

REACTIONS (4)
  - Hyponatraemia [Recovered/Resolved]
  - Bradycardia [Recovered/Resolved]
  - Hypovolaemia [Recovering/Resolving]
  - Hypotension [Unknown]
